FAERS Safety Report 7786655-2 (Version None)
Quarter: 2011Q3

REPORT INFORMATION
  Report Type: 
  Country: None (occurrence: None)
  Receive Date: 20110929
  Receipt Date: 20110923
  Transmission Date: 20111222
  Serious: Yes (Other)
  Sender: FDA-Public Use
  Company Number: US-PFIZER INC-2011203308

PATIENT
  Sex: Female
  Weight: 56.7 kg

DRUGS (3)
  1. PREMARIN [Suspect]
     Indication: VULVOVAGINAL DRYNESS
     Dosage: 1/2 GRAM 2-3 TIMES PER WEEK
     Route: 067
     Dates: start: 20110822, end: 20110825
  2. PREMARIN [Suspect]
     Indication: ATROPHIC VULVOVAGINITIS
  3. LISINOPRIL AND HYDROCHLOROTHIAZIDE [Concomitant]
     Indication: HYPERTENSION
     Dosage: 10/12.5 MG, DAILY
     Dates: start: 19910101

REACTIONS (3)
  - VAGINAL HAEMORRHAGE [None]
  - DRUG INEFFECTIVE [None]
  - VULVOVAGINAL PAIN [None]
